FAERS Safety Report 24697753 (Version 1)
Quarter: 2024Q4

REPORT INFORMATION
  Report Type: Spontaneous
  Country: US (occurrence: US)
  Receive Date: 20241204
  Receipt Date: 20241204
  Transmission Date: 20250114
  Serious: No
  Sender: SANOFI AVENTIS
  Company Number: US-SA-2024SA351364

PATIENT

DRUGS (1)
  1. FERRLECIT [Suspect]
     Active Substance: SODIUM FERRIC GLUCONATE COMPLEX
     Indication: Product used for unknown indication
     Dosage: UNK
     Route: 065

REACTIONS (7)
  - Burning sensation [Unknown]
  - Infusion related reaction [Unknown]
  - Dyspnoea [Unknown]
  - Paraesthesia [Unknown]
  - Chest pain [Unknown]
  - Product quality issue [Unknown]
  - Off label use [Unknown]
